FAERS Safety Report 20448945 (Version 1)
Quarter: 2022Q1

REPORT INFORMATION
  Report Type: Spontaneous
  Country: FR (occurrence: FR)
  Receive Date: 20220209
  Receipt Date: 20220209
  Transmission Date: 20220424
  Serious: Yes (Hospitalization)
  Sender: FDA-Public Use
  Company Number: None

PATIENT
  Age: 74 Year
  Sex: Female

DRUGS (3)
  1. LINEZOLID [Suspect]
     Active Substance: LINEZOLID
     Indication: Antibiotic therapy
     Dosage: 1.2 G
     Route: 042
     Dates: start: 20211120, end: 20211207
  2. CEFEPIME [Suspect]
     Active Substance: CEFEPIME HYDROCHLORIDE
     Indication: Antibiotic therapy
     Dosage: 6 G
     Route: 042
     Dates: start: 20211120, end: 20211207
  3. FLAGYL [Suspect]
     Active Substance: METRONIDAZOLE\METRONIDAZOLE HYDROCHLORIDE
     Indication: Antibiotic therapy
     Dosage: 1.5 G
     Route: 042
     Dates: start: 20211120, end: 20211207

REACTIONS (2)
  - Confusional state [Recovering/Resolving]
  - Hallucination, olfactory [Recovering/Resolving]

NARRATIVE: CASE EVENT DATE: 20211130
